FAERS Safety Report 25385540 (Version 2)
Quarter: 2025Q2

REPORT INFORMATION
  Report Type: Spontaneous
  Country: US (occurrence: US)
  Receive Date: 20250602
  Receipt Date: 20250625
  Transmission Date: 20250717
  Serious: No
  Sender: MERCK SHARP & DOHME LLC
  Company Number: US-009507513-2291395

PATIENT
  Age: 4 Year

DRUGS (4)
  1. VARIVAX [Suspect]
     Active Substance: VARICELLA-ZOSTER VIRUS STRAIN OKA/MERCK LIVE ANTIGEN
     Indication: Prophylaxis
     Route: 065
     Dates: start: 20250513, end: 20250513
  2. VARIVAX [Suspect]
     Active Substance: VARICELLA-ZOSTER VIRUS STRAIN OKA/MERCK LIVE ANTIGEN
     Indication: Prophylaxis
     Route: 065
     Dates: start: 20250513, end: 20250513
  3. MMR Merck [Concomitant]
     Indication: Prophylaxis
     Route: 065
     Dates: start: 20250513, end: 20250513
  4. DTap-IPV Kinrix [Concomitant]
     Route: 065
     Dates: start: 20250513, end: 20250513

REACTIONS (2)
  - Product storage error [Unknown]
  - No adverse event [Unknown]

NARRATIVE: CASE EVENT DATE: 20250513
